FAERS Safety Report 5204425-6 (Version None)
Quarter: 2007Q1

REPORT INFORMATION
  Report Type: 
  Country: None (occurrence: None)
  Receive Date: 20070110
  Receipt Date: 20060321
  Transmission Date: 20070707
  Serious: No
  Sender: FDA-Public Use
  Company Number: US-BRISTOL-MYERS SQUIBB COMPANY-13322250

PATIENT
  Age: 4 Decade
  Sex: Female
  Weight: 91 kg

DRUGS (4)
  1. ABILIFY [Suspect]
     Indication: PSYCHOTIC DISORDER
     Route: 048
  2. ABILIFY [Suspect]
     Indication: AGGRESSION
     Route: 048
  3. PROLIXIN [Concomitant]
  4. ATIVAN [Concomitant]

REACTIONS (1)
  - DRUG INEFFECTIVE [None]
